FAERS Safety Report 7216959-3 (Version None)
Quarter: 2011Q1

REPORT INFORMATION
  Report Type: 
  Country: None (occurrence: None)
  Receive Date: 20110110
  Receipt Date: 20101231
  Transmission Date: 20110831
  Serious: Yes (Other)
  Sender: FDA-Public Use
  Company Number: US-TEVA-261909USA

PATIENT
  Sex: Male
  Weight: 61.29 kg

DRUGS (9)
  1. OMEPRAZOLE [Concomitant]
     Indication: GASTROOESOPHAGEAL REFLUX DISEASE
  2. PRAMIPEXOLE DIHYDROCHLORIDE [Suspect]
     Indication: RESTLESS LEGS SYNDROME
     Dates: start: 20090901, end: 20100501
  3. GABAPENTIN [Suspect]
     Indication: RESTLESS LEGS SYNDROME
     Dates: start: 20090901, end: 20100501
  4. ATORVASTATIN CALCIUM [Suspect]
     Indication: BLOOD CHOLESTEROL INCREASED
  5. ATENOLOL [Concomitant]
     Indication: HYPERTENSION
  6. LISINOPRIL [Concomitant]
  7. ALLOPURINOL [Concomitant]
     Indication: GOUT
  8. ATORVASTATIN CALCIUM [Suspect]
     Indication: CARDIAC DISORDER
     Dosage: 40 MG DAILY
     Route: 048
     Dates: start: 19990401
  9. ACETYLSALICYLIC ACID [Concomitant]

REACTIONS (2)
  - DIZZINESS [None]
  - FALL [None]
